FAERS Safety Report 12830195 (Version 2)
Quarter: 2017Q3

REPORT INFORMATION
  Report Type: Spontaneous
  Country: US (occurrence: US)
  Receive Date: 20161007
  Receipt Date: 20170928
  Transmission Date: 20171127
  Serious: No
  Sender: FDA-Public Use
  Company Number: US-SA-2016SA156212

PATIENT
  Age: 67 Year
  Sex: Female
  Weight: 72.57 kg

DRUGS (26)
  1. CARBAMAZEPINE. [Concomitant]
     Active Substance: CARBAMAZEPINE
     Indication: MULTIPLE SCLEROSIS
     Dates: start: 20160415
  2. LISINOPRIL. [Concomitant]
     Active Substance: LISINOPRIL
     Indication: BLOOD PRESSURE MEASUREMENT
     Dates: start: 20160618
  3. HYDROCHLOROTHIAZIDE/LISINOPRIL [Concomitant]
     Indication: BLOOD PRESSURE MEASUREMENT
     Dates: start: 20091101, end: 20160618
  4. LAMOTRIGINE. [Concomitant]
     Active Substance: LAMOTRIGINE
     Indication: MULTIPLE SCLEROSIS
     Dates: start: 20160301
  5. LOVAZA [Concomitant]
     Active Substance: OMEGA-3-ACID ETHYL ESTERS
     Indication: BLOOD CHOLESTEROL
     Dates: start: 20160618
  6. ZANAFLEX [Concomitant]
     Active Substance: TIZANIDINE HYDROCHLORIDE
     Indication: MULTIPLE SCLEROSIS
     Dates: start: 20060310
  7. OMEPRAZOLE. [Concomitant]
     Active Substance: OMEPRAZOLE
     Indication: ABDOMINAL DISCOMFORT
     Dates: start: 20160218
  8. CARBAMAZEPINE. [Concomitant]
     Active Substance: CARBAMAZEPINE
     Indication: TRIGEMINAL NEURALGIA
     Dates: start: 20160415
  9. HYDROCODONE W/ACETAMINOPHEN [Concomitant]
     Active Substance: ACETAMINOPHEN\HYDROCODONE BITARTRATE
     Indication: BACK PAIN
     Dates: start: 20050708
  10. NEURONTIN [Concomitant]
     Active Substance: GABAPENTIN
     Indication: MULTIPLE SCLEROSIS
     Dates: start: 20160826
  11. ZOCOR [Concomitant]
     Active Substance: SIMVASTATIN
     Indication: BLOOD CHOLESTEROL
     Dates: start: 20041001, end: 201606
  12. FISH OIL [Concomitant]
     Active Substance: FISH OIL
     Dates: start: 20160618
  13. AMANTADINE. [Concomitant]
     Active Substance: AMANTADINE HYDROCHLORIDE
     Indication: FATIGUE
     Dates: start: 20140901
  14. HYDROCODONE W/ACETAMINOPHEN [Concomitant]
     Active Substance: ACETAMINOPHEN\HYDROCODONE BITARTRATE
     Indication: MULTIPLE SCLEROSIS
     Dates: start: 20050708
  15. VITAMIN D [Concomitant]
     Active Substance: CHOLECALCIFEROL
     Indication: ILL-DEFINED DISORDER
     Dosage: DOSE:1000 UNIT(S)
     Dates: start: 20160119
  16. SYNTHROID [Concomitant]
     Active Substance: LEVOTHYROXINE SODIUM
     Dates: start: 20070401
  17. ZANAFLEX [Concomitant]
     Active Substance: TIZANIDINE HYDROCHLORIDE
     Indication: MUSCLE RELAXANT THERAPY
     Dates: start: 20060310
  18. AMANTADINE. [Concomitant]
     Active Substance: AMANTADINE HYDROCHLORIDE
     Indication: MULTIPLE SCLEROSIS
     Dates: start: 20140901
  19. EXCEDRIN [Concomitant]
     Active Substance: ACETAMINOPHEN\ASPIRIN\CAFFEINE
     Indication: HEADACHE
  20. AMITRIPTYLINE [Concomitant]
     Active Substance: AMITRIPTYLINE
     Indication: PAIN IN EXTREMITY
     Dates: start: 20131115
  21. CYMBALTA [Concomitant]
     Active Substance: DULOXETINE HYDROCHLORIDE
     Indication: MULTIPLE SCLEROSIS
     Dates: start: 20110401
  22. AUBAGIO [Suspect]
     Active Substance: TERIFLUNOMIDE
     Indication: MULTIPLE SCLEROSIS
     Route: 065
     Dates: start: 20160212
  23. LAMOTRIGINE. [Concomitant]
     Active Substance: LAMOTRIGINE
     Indication: PAIN IN EXTREMITY
     Dates: start: 20160301
  24. AMPYRA [Concomitant]
     Active Substance: DALFAMPRIDINE
     Indication: MULTIPLE SCLEROSIS
     Route: 048
     Dates: start: 20160512
  25. AMITRIPTYLINE [Concomitant]
     Active Substance: AMITRIPTYLINE
     Indication: MULTIPLE SCLEROSIS
     Dates: start: 20131115
  26. CENTRUM SILVER [Concomitant]
     Active Substance: MINERALS\VITAMINS
     Indication: ROUTINE HEALTH MAINTENANCE
     Dates: start: 20050308

REACTIONS (1)
  - Abdominal discomfort [Not Recovered/Not Resolved]

NARRATIVE: CASE EVENT DATE: 20160215
